FAERS Safety Report 23453330 (Version 20)
Quarter: 2024Q3

REPORT INFORMATION
  Report Type: Spontaneous
  Country: GB (occurrence: GB)
  Receive Date: 20240129
  Receipt Date: 20240923
  Transmission Date: 20241017
  Serious: Yes (Other)
  Sender: MYLAN
  Company Number: None

PATIENT
  Age: 38 Year
  Sex: Male
  Weight: 104 kg

DRUGS (272)
  1. FLUOXETINE [Suspect]
     Active Substance: FLUOXETINE HYDROCHLORIDE
     Indication: Blood cholesterol increased
     Dosage: UNK (OCCLUSIVE DRESSING TECHNIQUE)
     Route: 047
  2. FLUOXETINE [Suspect]
     Active Substance: FLUOXETINE HYDROCHLORIDE
     Indication: Hypertension
     Dosage: UNK
     Route: 047
  3. FLUOXETINE [Suspect]
     Active Substance: FLUOXETINE HYDROCHLORIDE
     Indication: Depression
     Dosage: UNK
     Route: 061
  4. FLUOXETINE [Suspect]
     Active Substance: FLUOXETINE HYDROCHLORIDE
     Indication: Blood cholesterol increased
     Dosage: UNK
     Route: 065
     Dates: start: 20231220
  5. FLUOXETINE [Suspect]
     Active Substance: FLUOXETINE HYDROCHLORIDE
     Dosage: UNK
     Route: 065
     Dates: start: 20231220
  6. FLUOXETINE [Suspect]
     Active Substance: FLUOXETINE HYDROCHLORIDE
     Dosage: UNK
     Route: 065
  7. FLUOXETINE [Suspect]
     Active Substance: FLUOXETINE HYDROCHLORIDE
     Dosage: UNK
     Route: 065
  8. FLUOXETINE [Suspect]
     Active Substance: FLUOXETINE HYDROCHLORIDE
     Dosage: UNK
     Route: 065
  9. FLUOXETINE [Suspect]
     Active Substance: FLUOXETINE HYDROCHLORIDE
     Dosage: UNK
     Route: 065
  10. FLUOXETINE [Suspect]
     Active Substance: FLUOXETINE HYDROCHLORIDE
     Dosage: UNK
     Route: 065
  11. FLUOXETINE [Suspect]
     Active Substance: FLUOXETINE HYDROCHLORIDE
     Dosage: UNK
     Route: 065
  12. FLUOXETINE [Suspect]
     Active Substance: FLUOXETINE HYDROCHLORIDE
     Dosage: UNK
     Route: 065
  13. FLUOXETINE [Suspect]
     Active Substance: FLUOXETINE HYDROCHLORIDE
     Dosage: UNK
     Route: 065
  14. FLUOXETINE [Suspect]
     Active Substance: FLUOXETINE HYDROCHLORIDE
     Dosage: UNK
     Route: 065
  15. FLUOXETINE [Suspect]
     Active Substance: FLUOXETINE HYDROCHLORIDE
     Dosage: UNK
     Route: 065
  16. FLUOXETINE [Suspect]
     Active Substance: FLUOXETINE HYDROCHLORIDE
     Dosage: UNK
     Route: 065
  17. FLUOXETINE [Suspect]
     Active Substance: FLUOXETINE HYDROCHLORIDE
     Dosage: UNK
     Route: 065
  18. FLUOXETINE [Suspect]
     Active Substance: FLUOXETINE HYDROCHLORIDE
     Dosage: UNK
     Route: 065
  19. FLUOXETINE [Suspect]
     Active Substance: FLUOXETINE HYDROCHLORIDE
     Dosage: UNK
     Route: 065
  20. FLUOXETINE [Suspect]
     Active Substance: FLUOXETINE HYDROCHLORIDE
     Dosage: UNK
     Route: 065
  21. FLUOXETINE [Suspect]
     Active Substance: FLUOXETINE HYDROCHLORIDE
     Dosage: UNK
     Route: 065
  22. FLUOXETINE [Suspect]
     Active Substance: FLUOXETINE HYDROCHLORIDE
     Dosage: UNK
     Route: 065
  23. FLUOXETINE [Suspect]
     Active Substance: FLUOXETINE HYDROCHLORIDE
     Dosage: UNK
     Route: 065
  24. FLUOXETINE [Suspect]
     Active Substance: FLUOXETINE HYDROCHLORIDE
     Dosage: UNK (OCCLUSIVE DRESSING TECHNIQUE)
     Route: 065
  25. FLUOXETINE [Suspect]
     Active Substance: FLUOXETINE HYDROCHLORIDE
     Dosage: UNK
     Route: 047
  26. FLUOXETINE [Suspect]
     Active Substance: FLUOXETINE HYDROCHLORIDE
     Dosage: UNK
     Route: 047
  27. FLUOXETINE [Suspect]
     Active Substance: FLUOXETINE HYDROCHLORIDE
     Dosage: UNK
     Route: 047
  28. FLUOXETINE [Suspect]
     Active Substance: FLUOXETINE HYDROCHLORIDE
     Dosage: UNK
     Route: 047
  29. FLUOXETINE [Suspect]
     Active Substance: FLUOXETINE HYDROCHLORIDE
     Dosage: UNK
     Route: 047
  30. FLUOXETINE [Suspect]
     Active Substance: FLUOXETINE HYDROCHLORIDE
     Dosage: UNK
     Route: 047
  31. FLUOXETINE [Suspect]
     Active Substance: FLUOXETINE HYDROCHLORIDE
     Dosage: UNK
     Route: 047
  32. FLUOXETINE [Suspect]
     Active Substance: FLUOXETINE HYDROCHLORIDE
     Dosage: UNK
     Route: 047
  33. FLUOXETINE [Suspect]
     Active Substance: FLUOXETINE HYDROCHLORIDE
     Dosage: UNK
     Route: 047
  34. FLUOXETINE [Suspect]
     Active Substance: FLUOXETINE HYDROCHLORIDE
     Dosage: UNK
     Route: 047
  35. FLUOXETINE [Suspect]
     Active Substance: FLUOXETINE HYDROCHLORIDE
     Dosage: UNK
     Route: 047
  36. FLUOXETINE [Suspect]
     Active Substance: FLUOXETINE HYDROCHLORIDE
     Dosage: UNK
     Route: 047
  37. FLUOXETINE [Suspect]
     Active Substance: FLUOXETINE HYDROCHLORIDE
     Dosage: UNK
     Route: 047
  38. FLUOXETINE [Suspect]
     Active Substance: FLUOXETINE HYDROCHLORIDE
     Dosage: UNK
     Route: 047
  39. FLUOXETINE [Suspect]
     Active Substance: FLUOXETINE HYDROCHLORIDE
     Dosage: UNK
     Route: 047
  40. FLUOXETINE [Suspect]
     Active Substance: FLUOXETINE HYDROCHLORIDE
     Dosage: UNK
     Route: 047
  41. FLUOXETINE [Suspect]
     Active Substance: FLUOXETINE HYDROCHLORIDE
     Dosage: UNK
     Route: 047
  42. FLUOXETINE [Suspect]
     Active Substance: FLUOXETINE HYDROCHLORIDE
     Dosage: UNK
     Route: 047
  43. FLUOXETINE [Suspect]
     Active Substance: FLUOXETINE HYDROCHLORIDE
     Dosage: UNK
     Route: 047
  44. FLUOXETINE [Suspect]
     Active Substance: FLUOXETINE HYDROCHLORIDE
     Dosage: UNK
     Route: 047
  45. FLUOXETINE [Suspect]
     Active Substance: FLUOXETINE HYDROCHLORIDE
     Dosage: UNK
     Route: 047
  46. FLUOXETINE [Suspect]
     Active Substance: FLUOXETINE HYDROCHLORIDE
     Dosage: UNK
     Route: 047
  47. FLUOXETINE [Suspect]
     Active Substance: FLUOXETINE HYDROCHLORIDE
     Dosage: UNK
     Route: 047
  48. FLUOXETINE [Suspect]
     Active Substance: FLUOXETINE HYDROCHLORIDE
     Dosage: UNK
     Route: 047
  49. FLUOXETINE [Suspect]
     Active Substance: FLUOXETINE HYDROCHLORIDE
     Dosage: UNK
     Route: 047
  50. FLUOXETINE [Suspect]
     Active Substance: FLUOXETINE HYDROCHLORIDE
     Dosage: UNK
     Route: 047
  51. FLUOXETINE [Suspect]
     Active Substance: FLUOXETINE HYDROCHLORIDE
     Dosage: UNK
     Route: 047
  52. FLUOXETINE [Suspect]
     Active Substance: FLUOXETINE HYDROCHLORIDE
     Dosage: UNK
     Route: 047
  53. FLUOXETINE [Suspect]
     Active Substance: FLUOXETINE HYDROCHLORIDE
     Dosage: UNK
     Route: 061
  54. LERCANIDIPINE [Suspect]
     Active Substance: LERCANIDIPINE
     Indication: Blood cholesterol increased
     Dosage: UNK
     Route: 065
  55. LERCANIDIPINE [Suspect]
     Active Substance: LERCANIDIPINE
     Indication: Hypertension
     Dosage: UNK
     Route: 065
  56. LERCANIDIPINE [Suspect]
     Active Substance: LERCANIDIPINE
     Indication: Depression
     Dosage: UNK
     Route: 065
  57. LERCANIDIPINE [Suspect]
     Active Substance: LERCANIDIPINE
     Indication: Blood cholesterol increased
     Dosage: UNK
     Route: 065
  58. LERCANIDIPINE [Suspect]
     Active Substance: LERCANIDIPINE
     Dosage: UNK
     Route: 065
  59. LERCANIDIPINE [Suspect]
     Active Substance: LERCANIDIPINE
     Dosage: UNK
     Route: 065
  60. LERCANIDIPINE [Suspect]
     Active Substance: LERCANIDIPINE
     Dosage: UNK
     Route: 065
  61. LERCANIDIPINE [Suspect]
     Active Substance: LERCANIDIPINE
     Dosage: UNK
     Route: 065
  62. LERCANIDIPINE [Suspect]
     Active Substance: LERCANIDIPINE
     Dosage: UNK
     Route: 065
  63. LERCANIDIPINE [Suspect]
     Active Substance: LERCANIDIPINE
     Dosage: UNK
     Route: 065
  64. LERCANIDIPINE [Suspect]
     Active Substance: LERCANIDIPINE
     Dosage: UNK
     Route: 065
  65. LERCANIDIPINE [Suspect]
     Active Substance: LERCANIDIPINE
     Dosage: UNK
     Route: 065
  66. LERCANIDIPINE [Suspect]
     Active Substance: LERCANIDIPINE
     Dosage: UNK
     Route: 065
  67. LERCANIDIPINE [Suspect]
     Active Substance: LERCANIDIPINE
     Dosage: UNK
     Route: 065
  68. LERCANIDIPINE [Suspect]
     Active Substance: LERCANIDIPINE
     Dosage: UNK
     Route: 065
  69. LERCANIDIPINE [Suspect]
     Active Substance: LERCANIDIPINE
     Dosage: UNK
     Route: 065
  70. LERCANIDIPINE [Suspect]
     Active Substance: LERCANIDIPINE
     Dosage: UNK
     Route: 065
  71. LERCANIDIPINE [Suspect]
     Active Substance: LERCANIDIPINE
     Dosage: UNK
     Route: 065
  72. LERCANIDIPINE [Suspect]
     Active Substance: LERCANIDIPINE
     Dosage: UNK
     Route: 065
  73. LERCANIDIPINE [Suspect]
     Active Substance: LERCANIDIPINE
     Dosage: UNK
     Route: 065
  74. LERCANIDIPINE [Suspect]
     Active Substance: LERCANIDIPINE
     Dosage: UNK
     Route: 065
  75. LERCANIDIPINE [Suspect]
     Active Substance: LERCANIDIPINE
     Dosage: UNK
     Route: 065
  76. LERCANIDIPINE [Suspect]
     Active Substance: LERCANIDIPINE
     Dosage: UNK
     Route: 065
  77. LERCANIDIPINE [Suspect]
     Active Substance: LERCANIDIPINE
     Dosage: UNK
     Route: 065
  78. LERCANIDIPINE [Suspect]
     Active Substance: LERCANIDIPINE
     Dosage: UNK
     Route: 065
  79. LERCANIDIPINE [Suspect]
     Active Substance: LERCANIDIPINE
     Dosage: UNK
     Route: 065
  80. LERCANIDIPINE [Suspect]
     Active Substance: LERCANIDIPINE
     Dosage: UNK
     Route: 065
  81. LERCANIDIPINE [Suspect]
     Active Substance: LERCANIDIPINE
     Dosage: UNK
     Route: 065
  82. LERCANIDIPINE [Suspect]
     Active Substance: LERCANIDIPINE
     Dosage: UNK
     Route: 065
  83. LERCANIDIPINE [Suspect]
     Active Substance: LERCANIDIPINE
     Dosage: UNK
     Route: 065
  84. LERCANIDIPINE [Suspect]
     Active Substance: LERCANIDIPINE
     Dosage: UNK
     Route: 065
  85. LERCANIDIPINE [Suspect]
     Active Substance: LERCANIDIPINE
     Dosage: UNK
     Route: 065
  86. LERCANIDIPINE [Suspect]
     Active Substance: LERCANIDIPINE
     Dosage: UNK
     Route: 065
  87. LERCANIDIPINE [Suspect]
     Active Substance: LERCANIDIPINE
     Dosage: UNK
     Route: 065
  88. LERCANIDIPINE [Suspect]
     Active Substance: LERCANIDIPINE
     Dosage: UNK
     Route: 065
  89. LERCANIDIPINE [Suspect]
     Active Substance: LERCANIDIPINE
     Dosage: UNK
     Route: 065
  90. LERCANIDIPINE [Suspect]
     Active Substance: LERCANIDIPINE
     Dosage: UNK
     Route: 065
  91. LERCANIDIPINE [Suspect]
     Active Substance: LERCANIDIPINE
     Dosage: UNK
     Route: 065
  92. LERCANIDIPINE [Suspect]
     Active Substance: LERCANIDIPINE
     Dosage: UNK
     Route: 065
  93. LERCANIDIPINE [Suspect]
     Active Substance: LERCANIDIPINE
     Dosage: UNK
     Route: 065
  94. LERCANIDIPINE [Suspect]
     Active Substance: LERCANIDIPINE
     Dosage: UNK
     Route: 065
  95. LERCANIDIPINE [Suspect]
     Active Substance: LERCANIDIPINE
     Dosage: UNK
     Route: 065
  96. LERCANIDIPINE [Suspect]
     Active Substance: LERCANIDIPINE
     Dosage: UNK
     Route: 065
  97. LERCANIDIPINE [Suspect]
     Active Substance: LERCANIDIPINE
     Dosage: UNK
     Route: 065
  98. LERCANIDIPINE [Suspect]
     Active Substance: LERCANIDIPINE
     Dosage: UNK
     Route: 065
  99. LERCANIDIPINE [Suspect]
     Active Substance: LERCANIDIPINE
     Dosage: UNK
     Route: 065
  100. LERCANIDIPINE [Suspect]
     Active Substance: LERCANIDIPINE
     Dosage: UNK
     Route: 065
  101. LERCANIDIPINE [Suspect]
     Active Substance: LERCANIDIPINE
     Dosage: UNK
     Route: 065
  102. LERCANIDIPINE [Suspect]
     Active Substance: LERCANIDIPINE
     Dosage: UNK
     Route: 065
  103. LERCANIDIPINE [Suspect]
     Active Substance: LERCANIDIPINE
     Dosage: UNK
     Route: 065
  104. LERCANIDIPINE [Suspect]
     Active Substance: LERCANIDIPINE
     Dosage: UNK
  105. AMLODIPINE [Suspect]
     Active Substance: AMLODIPINE BESYLATE
     Indication: Blood cholesterol increased
     Dosage: UNK
     Route: 048
  106. AMLODIPINE [Suspect]
     Active Substance: AMLODIPINE BESYLATE
     Indication: Hypertension
     Dosage: UNK
     Route: 065
  107. AMLODIPINE [Suspect]
     Active Substance: AMLODIPINE BESYLATE
     Indication: Depression
     Dosage: UNK
     Route: 065
  108. AMLODIPINE [Suspect]
     Active Substance: AMLODIPINE BESYLATE
     Indication: Hypercholesterolaemia
     Dosage: UNK
     Route: 065
  109. AMLODIPINE [Suspect]
     Active Substance: AMLODIPINE BESYLATE
     Dosage: UNK
     Route: 065
  110. AMLODIPINE [Suspect]
     Active Substance: AMLODIPINE BESYLATE
     Dosage: UNK
     Route: 065
  111. AMLODIPINE [Suspect]
     Active Substance: AMLODIPINE BESYLATE
     Dosage: UNK
     Route: 065
  112. AMLODIPINE [Suspect]
     Active Substance: AMLODIPINE BESYLATE
     Dosage: UNK
     Route: 065
  113. AMLODIPINE [Suspect]
     Active Substance: AMLODIPINE BESYLATE
     Dosage: UNK
     Route: 065
  114. AMLODIPINE [Suspect]
     Active Substance: AMLODIPINE BESYLATE
     Dosage: UNK
     Route: 065
  115. AMLODIPINE [Suspect]
     Active Substance: AMLODIPINE BESYLATE
     Dosage: UNK
     Route: 065
  116. AMLODIPINE [Suspect]
     Active Substance: AMLODIPINE BESYLATE
     Dosage: UNK
     Route: 065
  117. AMLODIPINE [Suspect]
     Active Substance: AMLODIPINE BESYLATE
     Dosage: UNK
     Route: 065
  118. AMLODIPINE [Suspect]
     Active Substance: AMLODIPINE BESYLATE
     Dosage: UNK
     Route: 065
  119. AMLODIPINE [Suspect]
     Active Substance: AMLODIPINE BESYLATE
     Dosage: UNK
     Route: 065
  120. AMLODIPINE [Suspect]
     Active Substance: AMLODIPINE BESYLATE
     Dosage: UNK
     Route: 065
  121. AMLODIPINE [Suspect]
     Active Substance: AMLODIPINE BESYLATE
     Dosage: UNK
     Route: 065
  122. AMLODIPINE [Suspect]
     Active Substance: AMLODIPINE BESYLATE
     Dosage: UNK
     Route: 065
  123. AMLODIPINE [Suspect]
     Active Substance: AMLODIPINE BESYLATE
     Dosage: UNK
     Route: 065
  124. AMLODIPINE [Suspect]
     Active Substance: AMLODIPINE BESYLATE
     Dosage: UNK
     Route: 065
  125. AMLODIPINE [Suspect]
     Active Substance: AMLODIPINE BESYLATE
     Dosage: UNK
     Route: 065
  126. AMLODIPINE [Suspect]
     Active Substance: AMLODIPINE BESYLATE
     Dosage: UNK
     Route: 065
  127. AMLODIPINE [Suspect]
     Active Substance: AMLODIPINE BESYLATE
     Dosage: UNK
     Route: 065
  128. AMLODIPINE [Suspect]
     Active Substance: AMLODIPINE BESYLATE
     Dosage: UNK
     Route: 048
  129. AMLODIPINE [Suspect]
     Active Substance: AMLODIPINE BESYLATE
     Dosage: UNK
     Route: 048
  130. AMLODIPINE [Suspect]
     Active Substance: AMLODIPINE BESYLATE
     Dosage: UNK
     Route: 048
  131. AMLODIPINE [Suspect]
     Active Substance: AMLODIPINE BESYLATE
     Dosage: UNK
     Route: 048
  132. AMLODIPINE [Suspect]
     Active Substance: AMLODIPINE BESYLATE
     Dosage: UNK
     Route: 048
  133. AMLODIPINE [Suspect]
     Active Substance: AMLODIPINE BESYLATE
     Dosage: UNK
     Route: 048
  134. AMLODIPINE [Suspect]
     Active Substance: AMLODIPINE BESYLATE
     Dosage: UNK
     Route: 048
  135. AMLODIPINE [Suspect]
     Active Substance: AMLODIPINE BESYLATE
     Dosage: UNK
     Route: 048
  136. AMLODIPINE [Suspect]
     Active Substance: AMLODIPINE BESYLATE
     Dosage: UNK
     Route: 048
  137. AMLODIPINE [Suspect]
     Active Substance: AMLODIPINE BESYLATE
     Dosage: UNK
     Route: 048
  138. AMLODIPINE [Suspect]
     Active Substance: AMLODIPINE BESYLATE
     Dosage: UNK
     Route: 048
  139. AMLODIPINE [Suspect]
     Active Substance: AMLODIPINE BESYLATE
     Dosage: UNK
     Route: 048
  140. AMLODIPINE [Suspect]
     Active Substance: AMLODIPINE BESYLATE
     Dosage: UNK
     Route: 048
  141. AMLODIPINE [Suspect]
     Active Substance: AMLODIPINE BESYLATE
     Dosage: UNK
     Route: 048
  142. AMLODIPINE [Suspect]
     Active Substance: AMLODIPINE BESYLATE
     Dosage: UNK
     Route: 048
  143. AMLODIPINE [Suspect]
     Active Substance: AMLODIPINE BESYLATE
     Dosage: UNK
     Route: 048
  144. AMLODIPINE [Suspect]
     Active Substance: AMLODIPINE BESYLATE
     Dosage: UNK
     Route: 048
  145. AMLODIPINE [Suspect]
     Active Substance: AMLODIPINE BESYLATE
     Dosage: UNK
     Route: 048
  146. AMLODIPINE [Suspect]
     Active Substance: AMLODIPINE BESYLATE
     Dosage: UNK
     Route: 048
  147. AMLODIPINE [Suspect]
     Active Substance: AMLODIPINE BESYLATE
     Dosage: UNK
     Route: 048
  148. AMLODIPINE [Suspect]
     Active Substance: AMLODIPINE BESYLATE
     Dosage: UNK
     Route: 048
  149. AMLODIPINE [Suspect]
     Active Substance: AMLODIPINE BESYLATE
     Dosage: UNK
     Route: 048
  150. AMLODIPINE [Suspect]
     Active Substance: AMLODIPINE BESYLATE
     Dosage: UNK
     Route: 048
  151. AMLODIPINE [Suspect]
     Active Substance: AMLODIPINE BESYLATE
     Dosage: UNK
     Route: 048
  152. AMLODIPINE [Suspect]
     Active Substance: AMLODIPINE BESYLATE
     Dosage: UNK
     Route: 048
  153. AMLODIPINE [Suspect]
     Active Substance: AMLODIPINE BESYLATE
     Dosage: UNK
     Route: 048
  154. AMLODIPINE [Suspect]
     Active Substance: AMLODIPINE BESYLATE
     Dosage: UNK
     Route: 048
  155. AMLODIPINE [Suspect]
     Active Substance: AMLODIPINE BESYLATE
     Dosage: UNK
  156. SIMVASTATIN [Suspect]
     Active Substance: SIMVASTATIN
     Indication: Depression
     Dosage: UNK
     Route: 048
  157. SIMVASTATIN [Suspect]
     Active Substance: SIMVASTATIN
     Indication: Hypertension
     Dosage: UNK
     Route: 065
  158. SIMVASTATIN [Suspect]
     Active Substance: SIMVASTATIN
     Indication: Blood cholesterol increased
     Dosage: UNK
     Route: 065
  159. SIMVASTATIN [Suspect]
     Active Substance: SIMVASTATIN
     Indication: Blood cholesterol increased
     Dosage: UNK
     Route: 065
  160. SIMVASTATIN [Suspect]
     Active Substance: SIMVASTATIN
     Dosage: UNK
     Route: 065
  161. SIMVASTATIN [Suspect]
     Active Substance: SIMVASTATIN
     Dosage: UNK
     Route: 065
  162. SIMVASTATIN [Suspect]
     Active Substance: SIMVASTATIN
     Dosage: UNK
     Route: 065
  163. SIMVASTATIN [Suspect]
     Active Substance: SIMVASTATIN
     Dosage: UNK
     Route: 065
  164. SIMVASTATIN [Suspect]
     Active Substance: SIMVASTATIN
     Dosage: UNK
     Route: 065
  165. SIMVASTATIN [Suspect]
     Active Substance: SIMVASTATIN
     Dosage: UNK
     Route: 065
  166. SIMVASTATIN [Suspect]
     Active Substance: SIMVASTATIN
     Dosage: UNK
     Route: 065
  167. SIMVASTATIN [Suspect]
     Active Substance: SIMVASTATIN
     Dosage: UNK
     Route: 065
  168. SIMVASTATIN [Suspect]
     Active Substance: SIMVASTATIN
     Dosage: UNK
     Route: 065
  169. SIMVASTATIN [Suspect]
     Active Substance: SIMVASTATIN
     Dosage: UNK
     Route: 065
  170. SIMVASTATIN [Suspect]
     Active Substance: SIMVASTATIN
     Dosage: UNK
     Route: 065
  171. SIMVASTATIN [Suspect]
     Active Substance: SIMVASTATIN
     Dosage: UNK
     Route: 065
  172. SIMVASTATIN [Suspect]
     Active Substance: SIMVASTATIN
     Dosage: UNK
     Route: 065
  173. SIMVASTATIN [Suspect]
     Active Substance: SIMVASTATIN
     Dosage: UNK
     Route: 065
  174. SIMVASTATIN [Suspect]
     Active Substance: SIMVASTATIN
     Dosage: UNK
     Route: 065
  175. SIMVASTATIN [Suspect]
     Active Substance: SIMVASTATIN
     Dosage: UNK
     Route: 065
  176. SIMVASTATIN [Suspect]
     Active Substance: SIMVASTATIN
     Dosage: UNK
     Route: 065
  177. SIMVASTATIN [Suspect]
     Active Substance: SIMVASTATIN
     Dosage: UNK
     Route: 065
  178. SIMVASTATIN [Suspect]
     Active Substance: SIMVASTATIN
     Dosage: UNK
     Route: 065
  179. SIMVASTATIN [Suspect]
     Active Substance: SIMVASTATIN
     Dosage: UNK
     Route: 065
  180. SIMVASTATIN [Suspect]
     Active Substance: SIMVASTATIN
     Dosage: UNK
     Route: 065
  181. SIMVASTATIN [Suspect]
     Active Substance: SIMVASTATIN
     Dosage: UNK
     Route: 065
  182. SIMVASTATIN [Suspect]
     Active Substance: SIMVASTATIN
     Dosage: UNK
     Route: 065
  183. SIMVASTATIN [Suspect]
     Active Substance: SIMVASTATIN
     Dosage: UNK
     Route: 065
  184. SIMVASTATIN [Suspect]
     Active Substance: SIMVASTATIN
     Dosage: UNK
     Route: 065
  185. SIMVASTATIN [Suspect]
     Active Substance: SIMVASTATIN
     Dosage: UNK
     Route: 065
  186. SIMVASTATIN [Suspect]
     Active Substance: SIMVASTATIN
     Dosage: UNK
     Route: 048
  187. SIMVASTATIN [Suspect]
     Active Substance: SIMVASTATIN
     Dosage: UNK
     Route: 048
  188. SIMVASTATIN [Suspect]
     Active Substance: SIMVASTATIN
     Dosage: UNK
     Route: 048
  189. SIMVASTATIN [Suspect]
     Active Substance: SIMVASTATIN
     Dosage: UNK
     Route: 048
  190. SIMVASTATIN [Suspect]
     Active Substance: SIMVASTATIN
     Dosage: UNK
     Route: 048
  191. SIMVASTATIN [Suspect]
     Active Substance: SIMVASTATIN
     Dosage: UNK
     Route: 048
  192. SIMVASTATIN [Suspect]
     Active Substance: SIMVASTATIN
     Dosage: UNK
     Route: 048
  193. SIMVASTATIN [Suspect]
     Active Substance: SIMVASTATIN
     Dosage: UNK
     Route: 048
  194. SIMVASTATIN [Suspect]
     Active Substance: SIMVASTATIN
     Dosage: UNK
     Route: 048
  195. SIMVASTATIN [Suspect]
     Active Substance: SIMVASTATIN
     Dosage: UNK
     Route: 048
  196. SIMVASTATIN [Suspect]
     Active Substance: SIMVASTATIN
     Dosage: UNK
     Route: 048
  197. SIMVASTATIN [Suspect]
     Active Substance: SIMVASTATIN
     Dosage: UNK
     Route: 048
  198. SIMVASTATIN [Suspect]
     Active Substance: SIMVASTATIN
     Dosage: UNK
     Route: 048
  199. SIMVASTATIN [Suspect]
     Active Substance: SIMVASTATIN
     Dosage: UNK
     Route: 048
  200. SIMVASTATIN [Suspect]
     Active Substance: SIMVASTATIN
     Dosage: UNK
     Route: 048
  201. SIMVASTATIN [Suspect]
     Active Substance: SIMVASTATIN
     Dosage: UNK
     Route: 048
  202. SIMVASTATIN [Suspect]
     Active Substance: SIMVASTATIN
     Dosage: UNK
     Route: 048
  203. SIMVASTATIN [Suspect]
     Active Substance: SIMVASTATIN
     Dosage: UNK
     Route: 048
  204. SIMVASTATIN [Suspect]
     Active Substance: SIMVASTATIN
     Dosage: UNK
  205. HYRIMOZ [Suspect]
     Active Substance: ADALIMUMAB-ADAZ
     Indication: Psoriasis
     Dosage: 80 MILLIGRAM,(80 MG SC WEEK 0)
     Route: 058
     Dates: start: 20231004, end: 20231025
  206. HYRIMOZ [Suspect]
     Active Substance: ADALIMUMAB-ADAZ
     Dosage: 40 MG SC WEEK 1
     Route: 058
     Dates: start: 20231004, end: 20231025
  207. HYRIMOZ [Suspect]
     Active Substance: ADALIMUMAB-ADAZ
     Dosage: 80 MILLIGRAM ( OTHER WEEK 0)
     Route: 058
     Dates: start: 20231004
  208. HYRIMOZ [Suspect]
     Active Substance: ADALIMUMAB-ADAZ
     Dosage: 40 MILLIGRAM, EVERY 22 DAYS WEEK 1
     Route: 058
     Dates: start: 20231004, end: 20231025
  209. HYRIMOZ [Suspect]
     Active Substance: ADALIMUMAB-ADAZ
     Dosage: 40 MILLIGRAM UNKNOWN (OTHER WEEK 1)
     Route: 058
     Dates: end: 20231025
  210. HYRIMOZ [Suspect]
     Active Substance: ADALIMUMAB-ADAZ
     Dosage: 80 MILLIGRAM (80 MG, OTHER WEEK 0)
     Route: 058
     Dates: start: 20231004
  211. HYRIMOZ [Suspect]
     Active Substance: ADALIMUMAB-ADAZ
     Dosage: 40 MILLIGRAM UNKNOWN (OTHER WEEK 1)
     Route: 058
     Dates: start: 20231004, end: 20231025
  212. HYRIMOZ [Suspect]
     Active Substance: ADALIMUMAB-ADAZ
     Dosage: 40 MILLIGRAM SC WEEK 1
     Route: 058
     Dates: start: 20231004, end: 20231025
  213. HYRIMOZ [Suspect]
     Active Substance: ADALIMUMAB-ADAZ
     Dosage: 80 MILLIGRAM SC WEEK 0
     Route: 058
     Dates: start: 20231004, end: 20231025
  214. HYRIMOZ [Suspect]
     Active Substance: ADALIMUMAB-ADAZ
     Dosage: 40 MILLIGRAM SC WEEK 1
     Route: 058
     Dates: start: 20231004, end: 20231025
  215. HYRIMOZ [Suspect]
     Active Substance: ADALIMUMAB-ADAZ
     Dosage: 80 MILLIGRAM (WEEK 0)
     Route: 058
     Dates: start: 20231004
  216. HYRIMOZ [Suspect]
     Active Substance: ADALIMUMAB-ADAZ
     Dosage: 80 MILLIGRAM (WEEK 0)
     Route: 058
     Dates: start: 20231004, end: 20231025
  217. HYRIMOZ [Suspect]
     Active Substance: ADALIMUMAB-ADAZ
     Dosage: 40 MILLIGRAM EVERY 22 DAYS (40 MG SC WEEK 1)
     Route: 058
     Dates: start: 20231004, end: 20231025
  218. HYRIMOZ [Suspect]
     Active Substance: ADALIMUMAB-ADAZ
     Dosage: 80 MILLIGRAM (WEEK 0)
     Route: 058
     Dates: start: 20231004, end: 20231025
  219. HYRIMOZ [Suspect]
     Active Substance: ADALIMUMAB-ADAZ
     Dosage: 40 MILLIGRAM (WEEK 1)
     Route: 058
     Dates: start: 20231004, end: 20231025
  220. HYRIMOZ [Suspect]
     Active Substance: ADALIMUMAB-ADAZ
     Dosage: 40 MILLIGRAM (WEEK 1)
     Route: 058
     Dates: end: 20231025
  221. HYRIMOZ [Suspect]
     Active Substance: ADALIMUMAB-ADAZ
     Dosage: 40 MILLIGRAM
     Route: 065
     Dates: end: 20231025
  222. HYRIMOZ [Suspect]
     Active Substance: ADALIMUMAB-ADAZ
     Dosage: UNK
     Route: 065
  223. LERCANIDIPINE HYDROCHLORIDE [Suspect]
     Active Substance: LERCANIDIPINE HYDROCHLORIDE
     Indication: Hypertension
     Dosage: UNK
     Route: 065
  224. LERCANIDIPINE HYDROCHLORIDE [Suspect]
     Active Substance: LERCANIDIPINE HYDROCHLORIDE
     Indication: Depression
     Dosage: UNK
     Route: 065
  225. LERCANIDIPINE HYDROCHLORIDE [Suspect]
     Active Substance: LERCANIDIPINE HYDROCHLORIDE
     Indication: Blood cholesterol increased
     Dosage: UNK
     Route: 065
  226. LERCANIDIPINE HYDROCHLORIDE [Suspect]
     Active Substance: LERCANIDIPINE HYDROCHLORIDE
     Indication: Hypercholesterolaemia
     Dosage: UNK
     Route: 065
  227. LERCANIDIPINE HYDROCHLORIDE [Suspect]
     Active Substance: LERCANIDIPINE HYDROCHLORIDE
     Dosage: UNK
     Route: 065
  228. LERCANIDIPINE HYDROCHLORIDE [Suspect]
     Active Substance: LERCANIDIPINE HYDROCHLORIDE
     Dosage: UNK
     Route: 065
  229. LERCANIDIPINE HYDROCHLORIDE [Suspect]
     Active Substance: LERCANIDIPINE HYDROCHLORIDE
     Dosage: UNK
     Route: 065
  230. LERCANIDIPINE HYDROCHLORIDE [Suspect]
     Active Substance: LERCANIDIPINE HYDROCHLORIDE
     Dosage: UNK
     Route: 065
  231. LERCANIDIPINE HYDROCHLORIDE [Suspect]
     Active Substance: LERCANIDIPINE HYDROCHLORIDE
     Dosage: UNK
     Route: 065
  232. LERCANIDIPINE HYDROCHLORIDE [Suspect]
     Active Substance: LERCANIDIPINE HYDROCHLORIDE
     Dosage: UNK
     Route: 065
  233. LERCANIDIPINE HYDROCHLORIDE [Suspect]
     Active Substance: LERCANIDIPINE HYDROCHLORIDE
     Dosage: UNK
     Route: 065
  234. LERCANIDIPINE HYDROCHLORIDE [Suspect]
     Active Substance: LERCANIDIPINE HYDROCHLORIDE
     Dosage: UNK
     Route: 065
  235. LERCANIDIPINE HYDROCHLORIDE [Suspect]
     Active Substance: LERCANIDIPINE HYDROCHLORIDE
     Dosage: UNK
     Route: 065
  236. LERCANIDIPINE HYDROCHLORIDE [Suspect]
     Active Substance: LERCANIDIPINE HYDROCHLORIDE
     Dosage: UNK
     Route: 065
  237. LERCANIDIPINE HYDROCHLORIDE [Suspect]
     Active Substance: LERCANIDIPINE HYDROCHLORIDE
     Dosage: UNK
     Route: 065
  238. LERCANIDIPINE HYDROCHLORIDE [Suspect]
     Active Substance: LERCANIDIPINE HYDROCHLORIDE
     Dosage: UNK
     Route: 065
  239. LERCANIDIPINE HYDROCHLORIDE [Suspect]
     Active Substance: LERCANIDIPINE HYDROCHLORIDE
     Dosage: UNK
     Route: 065
  240. LERCANIDIPINE HYDROCHLORIDE [Suspect]
     Active Substance: LERCANIDIPINE HYDROCHLORIDE
     Dosage: UNK
     Route: 065
  241. LERCANIDIPINE HYDROCHLORIDE [Suspect]
     Active Substance: LERCANIDIPINE HYDROCHLORIDE
     Dosage: UNK
     Route: 065
  242. LERCANIDIPINE HYDROCHLORIDE [Suspect]
     Active Substance: LERCANIDIPINE HYDROCHLORIDE
     Dosage: UNK
     Route: 065
  243. LERCANIDIPINE HYDROCHLORIDE [Suspect]
     Active Substance: LERCANIDIPINE HYDROCHLORIDE
     Dosage: UNK
     Route: 065
  244. LERCANIDIPINE HYDROCHLORIDE [Suspect]
     Active Substance: LERCANIDIPINE HYDROCHLORIDE
     Dosage: UNK
     Route: 065
  245. LERCANIDIPINE HYDROCHLORIDE [Suspect]
     Active Substance: LERCANIDIPINE HYDROCHLORIDE
     Dosage: UNK
     Route: 065
  246. LERCANIDIPINE HYDROCHLORIDE [Suspect]
     Active Substance: LERCANIDIPINE HYDROCHLORIDE
     Dosage: UNK
     Route: 065
  247. LERCANIDIPINE HYDROCHLORIDE [Suspect]
     Active Substance: LERCANIDIPINE HYDROCHLORIDE
     Dosage: UNK
     Route: 065
  248. LERCANIDIPINE HYDROCHLORIDE [Suspect]
     Active Substance: LERCANIDIPINE HYDROCHLORIDE
     Dosage: UNK
     Route: 065
  249. LERCANIDIPINE HYDROCHLORIDE [Suspect]
     Active Substance: LERCANIDIPINE HYDROCHLORIDE
     Dosage: UNK
     Route: 065
  250. LERCANIDIPINE HYDROCHLORIDE [Suspect]
     Active Substance: LERCANIDIPINE HYDROCHLORIDE
     Dosage: UNK
     Route: 065
  251. LERCANIDIPINE HYDROCHLORIDE [Suspect]
     Active Substance: LERCANIDIPINE HYDROCHLORIDE
     Dosage: UNK
     Route: 065
  252. LERCANIDIPINE HYDROCHLORIDE [Suspect]
     Active Substance: LERCANIDIPINE HYDROCHLORIDE
     Dosage: UNK
     Route: 065
  253. LERCANIDIPINE HYDROCHLORIDE [Suspect]
     Active Substance: LERCANIDIPINE HYDROCHLORIDE
     Dosage: UNK
     Route: 065
  254. LERCANIDIPINE HYDROCHLORIDE [Suspect]
     Active Substance: LERCANIDIPINE HYDROCHLORIDE
     Dosage: UNK
     Route: 065
  255. LERCANIDIPINE HYDROCHLORIDE [Suspect]
     Active Substance: LERCANIDIPINE HYDROCHLORIDE
     Dosage: UNK
     Route: 065
  256. LERCANIDIPINE HYDROCHLORIDE [Suspect]
     Active Substance: LERCANIDIPINE HYDROCHLORIDE
     Dosage: UNK
     Route: 065
  257. LERCANIDIPINE HYDROCHLORIDE [Suspect]
     Active Substance: LERCANIDIPINE HYDROCHLORIDE
     Dosage: UNK
     Route: 065
  258. LERCANIDIPINE HYDROCHLORIDE [Suspect]
     Active Substance: LERCANIDIPINE HYDROCHLORIDE
     Dosage: UNK
     Route: 065
  259. LERCANIDIPINE HYDROCHLORIDE [Suspect]
     Active Substance: LERCANIDIPINE HYDROCHLORIDE
     Dosage: UNK
     Route: 065
  260. LERCANIDIPINE HYDROCHLORIDE [Suspect]
     Active Substance: LERCANIDIPINE HYDROCHLORIDE
     Dosage: UNK
     Route: 065
  261. LERCANIDIPINE HYDROCHLORIDE [Suspect]
     Active Substance: LERCANIDIPINE HYDROCHLORIDE
     Dosage: UNK
     Route: 065
  262. LERCANIDIPINE HYDROCHLORIDE [Suspect]
     Active Substance: LERCANIDIPINE HYDROCHLORIDE
     Dosage: UNK
     Route: 065
  263. LERCANIDIPINE HYDROCHLORIDE [Suspect]
     Active Substance: LERCANIDIPINE HYDROCHLORIDE
     Dosage: UNK
     Route: 065
  264. LERCANIDIPINE HYDROCHLORIDE [Suspect]
     Active Substance: LERCANIDIPINE HYDROCHLORIDE
     Dosage: UNK
     Route: 065
  265. LERCANIDIPINE HYDROCHLORIDE [Suspect]
     Active Substance: LERCANIDIPINE HYDROCHLORIDE
     Dosage: UNK
     Route: 065
  266. LERCANIDIPINE HYDROCHLORIDE [Suspect]
     Active Substance: LERCANIDIPINE HYDROCHLORIDE
     Dosage: UNK
     Route: 065
  267. LERCANIDIPINE HYDROCHLORIDE [Suspect]
     Active Substance: LERCANIDIPINE HYDROCHLORIDE
     Dosage: UNK
     Route: 065
  268. LERCANIDIPINE HYDROCHLORIDE [Suspect]
     Active Substance: LERCANIDIPINE HYDROCHLORIDE
     Dosage: UNK
     Route: 065
  269. LERCANIDIPINE HYDROCHLORIDE [Suspect]
     Active Substance: LERCANIDIPINE HYDROCHLORIDE
     Dosage: UNK
     Route: 065
  270. LERCANIDIPINE HYDROCHLORIDE [Suspect]
     Active Substance: LERCANIDIPINE HYDROCHLORIDE
     Dosage: UNK
     Route: 065
  271. LERCANIDIPINE HYDROCHLORIDE [Suspect]
     Active Substance: LERCANIDIPINE HYDROCHLORIDE
     Dosage: UNK
     Route: 065
  272. LERCANIDIPINE HYDROCHLORIDE [Suspect]
     Active Substance: LERCANIDIPINE HYDROCHLORIDE
     Dosage: UNK
     Route: 065

REACTIONS (3)
  - Dermatitis exfoliative generalised [Unknown]
  - Rubber sensitivity [Unknown]
  - Incorrect route of product administration [Unknown]
